FAERS Safety Report 25700316 (Version 2)
Quarter: 2025Q3

REPORT INFORMATION
  Report Type: Spontaneous
  Country: EU (occurrence: EU)
  Receive Date: 20250819
  Receipt Date: 20250828
  Transmission Date: 20251020
  Serious: Yes (Death, Other)
  Sender: BAYER HEALTHCARE PHARMACEUTICALS INC.
  Company Number: EU-BAYER-2025A109778

PATIENT
  Sex: Male

DRUGS (1)
  1. ULTRAVIST [Suspect]
     Active Substance: IOPROMIDE
     Indication: Computerised tomogram
     Dates: start: 20250813, end: 20250813

REACTIONS (4)
  - Circulatory collapse [Fatal]
  - Fall [Fatal]
  - Respiratory arrest [Fatal]
  - Cyanosis [Fatal]

NARRATIVE: CASE EVENT DATE: 20250813
